FAERS Safety Report 8248212-3 (Version None)
Quarter: 2012Q1

REPORT INFORMATION
  Report Type: 
  Country: None (occurrence: None)
  Receive Date: 20120330
  Receipt Date: 20120327
  Transmission Date: 20120608
  Serious: Yes (Other)
  Sender: FDA-Public Use
  Company Number: BR-ABBOTT-11P-020-0882392-00

PATIENT
  Sex: Female
  Weight: 59 kg

DRUGS (2)
  1. HUMIRA [Suspect]
  2. HUMIRA [Suspect]
     Indication: RHEUMATOID ARTHRITIS
     Route: 058
     Dates: start: 20110101

REACTIONS (9)
  - GENERALISED OEDEMA [None]
  - WEIGHT INCREASED [None]
  - FUNCTIONAL GASTROINTESTINAL DISORDER [None]
  - GASTRITIS [None]
  - MALAISE [None]
  - ABDOMINAL DISTENSION [None]
  - INJECTION SITE ERYTHEMA [None]
  - GASTRIC POLYPS [None]
  - ABDOMINAL PAIN UPPER [None]
